FAERS Safety Report 17555743 (Version 1)
Quarter: 2020Q1

REPORT INFORMATION
  Report Type: Spontaneous
  Country: DE (occurrence: DE)
  Receive Date: 20200318
  Receipt Date: 20200318
  Transmission Date: 20200409
  Serious: Yes (Other)
  Sender: FDA-Public Use
  Company Number: DE-PFIZER INC-2020112290

PATIENT
  Sex: Female
  Weight: 4 kg

DRUGS (1)
  1. CYTOTEC [Suspect]
     Active Substance: MISOPROSTOL
     Indication: LABOUR INDUCTION
     Dosage: SINGLE DOSE ADMINISTERED WITHOUT PACKAGE FROM HALF A TABLET INCREASING TO 2 TABLETS
     Route: 064
     Dates: start: 20180717, end: 20180719

REACTIONS (6)
  - Abdominal pain upper [Recovering/Resolving]
  - Food intolerance [Recovering/Resolving]
  - Haematochezia [Recovering/Resolving]
  - Mucous stools [Recovering/Resolving]
  - Foetal exposure during delivery [Unknown]
  - Diarrhoea [Recovering/Resolving]

NARRATIVE: CASE EVENT DATE: 20180819
